FAERS Safety Report 18651406 (Version 1)
Quarter: 2020Q4

REPORT INFORMATION
  Report Type: Spontaneous
  Country: DE (occurrence: DE)
  Receive Date: 20201222
  Receipt Date: 20201222
  Transmission Date: 20210114
  Serious: Yes (Life-Threatening, Other)
  Sender: FDA-Public Use
  Company Number: DE-MYLANLABS-2020M1103787

PATIENT
  Age: 78 Year
  Sex: Male

DRUGS (25)
  1. SYMBICORT [Suspect]
     Active Substance: BUDESONIDE\FORMOTEROL FUMARATE DIHYDRATE
     Indication: CHRONIC OBSTRUCTIVE PULMONARY DISEASE
     Dosage: 320/9 UG DAILY
     Route: 055
  2. TESTOSTERONE UNDECANOATE. [Concomitant]
     Active Substance: TESTOSTERONE UNDECANOATE
     Indication: HYPOGONADISM
     Dosage: 1000 MG EVERY TWELVE WEEKS
     Route: 030
  3. CLOPIDOGREL [Concomitant]
     Active Substance: CLOPIDOGREL BISULFATE
     Dosage: 75 MILLIGRAM, QD
  4. FINASTERIDE. [Concomitant]
     Active Substance: FINASTERIDE
     Dosage: 5 MG 1-0-0
  5. DAXAS [Suspect]
     Active Substance: ROFLUMILAST
     Dosage: 500 MICROGRAM, QD
     Route: 048
  6. GLIMEPIRIDE. [Concomitant]
     Active Substance: GLIMEPIRIDE
     Indication: DIABETES MELLITUS
     Dosage: 4 MG IN THE MORNING
     Dates: start: 2010
  7. TRULICITY [Concomitant]
     Active Substance: DULAGLUTIDE
     Dosage: 2 MILLIGRAM, QW
     Dates: start: 2016
  8. SPIRIVA [Concomitant]
     Active Substance: TIOTROPIUM BROMIDE MONOHYDRATE
     Indication: CHRONIC OBSTRUCTIVE PULMONARY DISEASE
     Dosage: 18 MICROGRAM, BID
  9. ESOMEPRAZOLE. [Concomitant]
     Active Substance: ESOMEPRAZOLE MAGNESIUM
     Dosage: 40 MILLIGRAM, QD
  10. ATORVASTATIN [Concomitant]
     Active Substance: ATORVASTATIN
     Dosage: 40 MILLIGRAM, QD
  11. LISPRO INSULIN [Concomitant]
     Active Substance: INSULIN LISPRO
     Indication: DIABETES MELLITUS
     Dosage: 50 MG WITH MEALS
     Dates: start: 2010
  12. REPAGLINIDE. [Concomitant]
     Active Substance: REPAGLINIDE
     Dosage: 0.5 - 2 MG WITH MEALS
     Dates: start: 2010
  13. METFORMIN [Concomitant]
     Active Substance: METFORMIN HYDROCHLORIDE
     Indication: DIABETES MELLITUS
     Dosage: 1000 MG, 1-0-1
     Dates: start: 2010
  14. DAPAGLIFLOZIN. [Suspect]
     Active Substance: DAPAGLIFLOZIN
     Indication: DIABETES MELLITUS
     Dosage: 10 MILLIGRAM
     Route: 048
     Dates: start: 201212
  15. CARVEDILOL. [Concomitant]
     Active Substance: CARVEDILOL
     Dosage: 13 MILLIGRAM, BID
  16. EZETROL [Concomitant]
     Active Substance: EZETIMIBE
     Dosage: DAILY
  17. LANTUS [Concomitant]
     Active Substance: INSULIN GLARGINE
     Indication: DIABETES MELLITUS
     Dosage: 20 TO 40 IU IN THE EVENING
     Dates: start: 2010
  18. ZOPICLONE [Concomitant]
     Active Substance: ZOPICLONE
     Dosage: 8 MILLIGRAM, PRN
  19. TAMSULOSIN [Concomitant]
     Active Substance: TAMSULOSIN
     Dosage: 0.4 MG 1-0-0
  20. IBUPROFEN. [Concomitant]
     Active Substance: IBUPROFEN
     Dosage: UNK
     Dates: start: 201510
  21. REPAGLINIDE. [Concomitant]
     Active Substance: REPAGLINIDE
     Indication: DIABETES MELLITUS
     Dosage: 1 MG WITH MEALS
     Dates: start: 2010
  22. CANDESARTAN. [Suspect]
     Active Substance: CANDESARTAN
     Indication: HYPERTENSION
     Dosage: 16 MILLIGRAM, BID
     Route: 048
     Dates: start: 2010
  23. ACARBOSE. [Concomitant]
     Active Substance: ACARBOSE
     Indication: DIABETES MELLITUS
     Dosage: 50 MG WITH MEALS
     Dates: start: 2010
  24. TORASEMIDE [Concomitant]
     Active Substance: TORSEMIDE
     Indication: HYPERTENSION
     Dosage: 10 MILLIGRAM, QD
  25. AMLODIPINE [Concomitant]
     Active Substance: AMLODIPINE BESYLATE
     Indication: HYPERTENSION
     Dosage: 5 MG, 1-0-1

REACTIONS (17)
  - Chronic kidney disease [Unknown]
  - Aortic valve incompetence [Unknown]
  - Pulmonary congestion [Unknown]
  - Hypoglycaemia [Unknown]
  - Tricuspid valve incompetence [Unknown]
  - Dyslipidaemia [Unknown]
  - Hepatotoxicity [Unknown]
  - Acute myocardial infarction [Unknown]
  - Haematoma [Unknown]
  - Weight decreased [Unknown]
  - Vascular stent thrombosis [Unknown]
  - Diastolic dysfunction [Unknown]
  - Cough [Unknown]
  - Off label use [Unknown]
  - Right ventricular failure [Unknown]
  - Polyneuropathy [Unknown]
  - Neuropathy peripheral [Unknown]

NARRATIVE: CASE EVENT DATE: 2010
